FAERS Safety Report 4892327-4 (Version None)
Quarter: 2006Q1

REPORT INFORMATION
  Report Type: 
  Country: None (occurrence: None)
  Receive Date: 20060126
  Receipt Date: 20051202
  Transmission Date: 20060701
  Serious: No
  Sender: FDA-Public Use
  Company Number: US-GLAXOSMITHKLINE-A0584490A

PATIENT
  Age: 56 Year
  Sex: Female
  Weight: 90.9 kg

DRUGS (4)
  1. WELLBUTRIN XL [Suspect]
     Indication: DEPRESSION
     Dosage: 300MG PER DAY
     Route: 048
  2. VERAPAMIL [Concomitant]
     Dosage: 240MG PER DAY
  3. TOPAMAX [Concomitant]
     Dosage: 100MG AT NIGHT
  4. LUNESTA [Concomitant]
     Dosage: 2MG AT NIGHT

REACTIONS (2)
  - CONDITION AGGRAVATED [None]
  - MIGRAINE [None]
